FAERS Safety Report 7651799-2 (Version None)
Quarter: 2011Q3

REPORT INFORMATION
  Report Type: 
  Country: None (occurrence: None)
  Receive Date: 20110802
  Receipt Date: 20110722
  Transmission Date: 20111222
  Serious: Yes (Other)
  Sender: FDA-Public Use
  Company Number: PHHY2011US45085

PATIENT
  Sex: Female
  Weight: 127.5 kg

DRUGS (13)
  1. GLUCOSAMINE [Concomitant]
     Route: 048
  2. FEMARA [Suspect]
     Indication: BREAST CANCER
     Dosage: 2.5 MG, DAILY
     Route: 048
     Dates: start: 20100106
  3. FERROUS SULFATE TAB [Concomitant]
     Indication: ANAEMIA
     Route: 048
  4. FLANAX [Concomitant]
     Route: 048
  5. HYDROCHLOROTHIAZIDE [Concomitant]
     Indication: HYPERTENSION
     Dosage: 125 MG, DAILY
  6. VITAMIN D [Concomitant]
     Indication: BONE PAIN
  7. VICODIN [Concomitant]
     Indication: PAIN
  8. NAPROXEN (ALEVE) [Concomitant]
  9. METFORMIN HCL [Concomitant]
     Indication: DIABETES MELLITUS
     Dosage: 1000 MG, BID
  10. LISINOPRIL [Concomitant]
     Indication: HYPERTENSION
     Dosage: 5 MG, DAILY
     Route: 048
  11. INSULIN [Concomitant]
     Indication: DIABETES MELLITUS
     Dosage: 80 U, DAILY
  12. GLYBURIDE [Concomitant]
     Dosage: 5 MG, DAILY
  13. LEVOTHYROXINE SODIUM [Concomitant]
     Dosage: 25 MG, DAILY
     Route: 048

REACTIONS (2)
  - NEPHROLITHIASIS [None]
  - ALOPECIA [None]
